FAERS Safety Report 12952164 (Version 2)
Quarter: 2016Q4

REPORT INFORMATION
  Report Type: Spontaneous
  Country: IR (occurrence: IR)
  Receive Date: 20161117
  Receipt Date: 20161130
  Transmission Date: 20170207
  Serious: Yes (Hospitalization)
  Sender: FDA-Public Use
  Company Number: IR-SA-2016SA207866

PATIENT
  Age: 71 Year
  Sex: Male
  Weight: 64 kg

DRUGS (3)
  1. TAXOTERE [Suspect]
     Active Substance: DOCETAXEL
     Indication: PROSTATE CANCER
     Route: 042
  2. TAXOTERE [Suspect]
     Active Substance: DOCETAXEL
     Indication: PROSTATE CANCER
     Dosage: 20MG VIAL: TA201603 + 80MG VIAL: TA801602/1
     Route: 042
     Dates: start: 20161010, end: 20161010
  3. TAXOTERE [Suspect]
     Active Substance: DOCETAXEL
     Indication: PROSTATE CANCER
     Dosage: 20MG VIAL: TA201603 + 80MG VIAL: TA801602/1
     Route: 042
     Dates: start: 20161010, end: 20161010

REACTIONS (6)
  - Thermal burn [Recovered/Resolved]
  - Lacrimation increased [Not Recovered/Not Resolved]
  - Blister [Recovering/Resolving]
  - Nail discolouration [Unknown]
  - Onycholysis [Unknown]
  - Skin lesion [Recovering/Resolving]

NARRATIVE: CASE EVENT DATE: 20161010
